FAERS Safety Report 6028212-4 (Version None)
Quarter: 2009Q1

REPORT INFORMATION
  Report Type: 
  Country: None (occurrence: None)
  Receive Date: 20090106
  Receipt Date: 20081225
  Transmission Date: 20090719
  Serious: Yes (Other)
  Sender: FDA-Public Use
  Company Number: JP-BAYER-200812421BYL

PATIENT
  Age: 64 Year
  Sex: Male
  Weight: 64 kg

DRUGS (3)
  1. EOB PRIMOVIST INJ. SYRINGE [Suspect]
     Indication: HEPATIC NEOPLASM
     Dosage: TOTAL DAILY DOSE: 6 ML
     Route: 042
     Dates: start: 20080924, end: 20080924
  2. DAI-KEN CHU-TO [Concomitant]
     Dosage: AS USED: 6 DF
     Route: 048
     Dates: start: 20080909, end: 20080920
  3. LAC-B [Concomitant]
     Dosage: AS USED: 3 G
     Route: 048
     Dates: start: 20080909, end: 20080920

REACTIONS (1)
  - LIVER DISORDER [None]
